FAERS Safety Report 7967176-0 (Version None)
Quarter: 2011Q4

REPORT INFORMATION
  Report Type: 
  Country: None (occurrence: None)
  Receive Date: 20111209
  Receipt Date: 20111207
  Transmission Date: 20120403
  Serious: Yes (Other)
  Sender: FDA-Public Use
  Company Number: JP-PFIZER INC-2011091177

PATIENT
  Age: 63 Year
  Sex: Female
  Weight: 75.2 kg

DRUGS (16)
  1. PREDNISOLONE [Concomitant]
     Indication: RHEUMATOID ARTHRITIS
     Dosage: 2.5 MG, 2X/DAY
     Route: 048
  2. CELECOXIB [Concomitant]
     Indication: SPINAL COLUMN STENOSIS
     Dosage: 200 MG, 2X/DAY
     Route: 048
     Dates: start: 20091202
  3. OMEPRAZOLE [Concomitant]
     Indication: GASTRIC ULCER
     Dosage: 20 MG, 1X/DAY
     Route: 048
     Dates: start: 20100628, end: 20110829
  4. PASETOCIN [Concomitant]
     Indication: SINUSITIS
     Dosage: 500 MG, 3X/DAY
     Route: 048
     Dates: start: 20110401
  5. SUTENT [Suspect]
     Indication: RENAL CELL CARCINOMA
     Dosage: 25 MG, 1X/DAY
     Route: 048
     Dates: start: 20100309
  6. AMLODIPINE [Concomitant]
     Indication: HYPERTENSION
     Dosage: 5 MG, 1X/DAY
     Route: 048
     Dates: start: 20110331, end: 20110412
  7. CANDESARTAN CILEXETIL [Concomitant]
     Indication: HYPERTENSION
     Dosage: UNK
     Route: 048
     Dates: start: 20110202, end: 20110330
  8. PRORENAL [Concomitant]
     Indication: SPINAL COLUMN STENOSIS
     Dosage: 5 UG, 3X/DAY
     Route: 048
     Dates: start: 20100630
  9. METHYCOBAL [Concomitant]
     Indication: SPINAL COLUMN STENOSIS
     Dosage: 500 UG, 3X/DAY
     Route: 048
     Dates: start: 20091202
  10. MUCODYNE [Concomitant]
     Indication: GASTRITIS
     Dosage: 250 MG, 3X/DAY
     Route: 048
     Dates: start: 20110401, end: 20110415
  11. FOSAMAX [Suspect]
     Indication: OSTEOPOROSIS
     Dosage: 35 MG, WEEKLY
     Route: 048
     Dates: start: 20100611, end: 20110414
  12. LYRICA [Concomitant]
     Indication: NEUROPATHY PERIPHERAL
     Dosage: 75 MG, 2X/DAY
     Route: 048
     Dates: start: 20100818, end: 20110805
  13. FOLIC ACID [Concomitant]
     Dosage: 5 MG, WEEKLY
     Route: 048
     Dates: start: 20101020, end: 20110330
  14. AMLODIPINE [Concomitant]
     Dosage: 10 MG, 1X/DAY
     Route: 048
     Dates: start: 20110413
  15. ZONISAMIDE [Concomitant]
     Indication: METASTASES TO CENTRAL NERVOUS SYSTEM
     Dosage: 100 MG, 2X/DAY
     Route: 048
     Dates: start: 20110228
  16. METHOTREXATE [Concomitant]
     Indication: RHEUMATOID ARTHRITIS
     Dosage: 2 MG, 2X/DAY
     Route: 048
     Dates: start: 20100818, end: 20110330

REACTIONS (5)
  - SINUSITIS [None]
  - PYREXIA [None]
  - PLATELET COUNT DECREASED [None]
  - OSTEONECROSIS OF JAW [None]
  - DIZZINESS [None]
